FAERS Safety Report 12401867 (Version 2)
Quarter: 2016Q2

REPORT INFORMATION
  Report Type: Spontaneous
  Country: US (occurrence: US)
  Receive Date: 20160525
  Receipt Date: 20160527
  Transmission Date: 20160815
  Serious: No
  Sender: FDA-Public Use
  Company Number: US-SA-2015SA200364

PATIENT
  Age: 50 Year
  Sex: Female

DRUGS (8)
  1. METFORMIN [Concomitant]
     Active Substance: METFORMIN HYDROCHLORIDE
     Dates: end: 20151126
  2. HUMALOG [Concomitant]
     Active Substance: INSULIN LISPRO
     Dosage: 39 UNITS AT MEALTIMES DOSE:39 UNIT(S)
     Dates: end: 20151126
  3. INVOKANA [Concomitant]
     Active Substance: CANAGLIFLOZIN
     Dates: end: 20151126
  4. SOLOSTAR [Concomitant]
     Active Substance: DEVICE
     Dates: start: 201511, end: 201511
  5. LANTUS SOLOSTAR [Suspect]
     Active Substance: INSULIN GLARGINE
     Indication: TYPE 1 DIABETES MELLITUS
     Dosage: DOSE:30 UNIT(S)
     Route: 065
     Dates: start: 201511
  6. LANTUS SOLOSTAR [Suspect]
     Active Substance: INSULIN GLARGINE
     Indication: TYPE 1 DIABETES MELLITUS
     Route: 065
     Dates: start: 201511, end: 20151126
  7. VICTOZA [Suspect]
     Active Substance: LIRAGLUTIDE
     Indication: TYPE 1 DIABETES MELLITUS
     Dosage: DOSE- 1.8 (UNITS NOT SPECIFIED)
     Route: 065
     Dates: end: 20151125
  8. SOLOSTAR [Concomitant]
     Active Substance: DEVICE
     Dates: start: 201511

REACTIONS (3)
  - Gastrointestinal infection [Unknown]
  - Blood glucose increased [Unknown]
  - Wrong drug administered [Unknown]

NARRATIVE: CASE EVENT DATE: 201511
